FAERS Safety Report 8943409 (Version 2)
Quarter: 2012Q4

REPORT INFORMATION
  Report Type: 
  Country: JP (occurrence: JP)
  Receive Date: 20121204
  Receipt Date: 20121221
  Transmission Date: 20130627
  Serious: Yes (Other)
  Sender: FDA-Public Use
  Company Number: JP-MERCK-1211JPN012267

PATIENT
  Age: 75 Year
  Sex: Female
  Weight: 60 kg

DRUGS (4)
  1. FOSAMAC TABLETS 35MG [Suspect]
     Indication: OSTEOPOROSIS
     Dosage: 35 mg, qw
     Route: 048
     Dates: start: 20120821, end: 201211
  2. ZETIA [Suspect]
     Indication: HYPERLIPIDAEMIA
     Dosage: 10 mg, qd
     Route: 048
     Dates: start: 20120326, end: 20121111
  3. AMARYL [Concomitant]
     Indication: DIABETES MELLITUS
     Dosage: 0.5 mg, bid
     Route: 048
  4. REZALTAS [Concomitant]
     Indication: HYPERTENSION
     Dosage: 1 DF, qd
     Route: 048
     Dates: start: 20110328

REACTIONS (3)
  - Rhabdomyolysis [Unknown]
  - Blood creatine phosphokinase increased [Unknown]
  - Myalgia [Recovered/Resolved]
